FAERS Safety Report 25975602 (Version 1)
Quarter: 2025Q4

REPORT INFORMATION
  Report Type: Spontaneous
  Country: KR (occurrence: KR)
  Receive Date: 20251029
  Receipt Date: 20251029
  Transmission Date: 20260118
  Serious: Yes (Other)
  Sender: Kenvue
  Company Number: KR-KENVUE-20251009831

PATIENT

DRUGS (4)
  1. TYLENOL 8HR [Suspect]
     Active Substance: ACETAMINOPHEN
     Indication: Product used for unknown indication
     Dosage: 2 DOSAGE FORM, 0.33 TIME A DAY (2{DF} / 0.333DAY)
     Route: 065
     Dates: start: 20230927
  2. ERDOSTEINE [Suspect]
     Active Substance: ERDOSTEINE
     Indication: Product used for unknown indication
     Dosage: 1 DOSAGE FORM, 0.5 TIMES A DAY, (1{DF} / 0.5DAY)
     Route: 065
     Dates: start: 20230927
  3. LEVODROPROPIZINE [Suspect]
     Active Substance: LEVODROPROPIZINE
     Indication: Product used for unknown indication
     Dosage: 1 DOSAGE FORM, 0.33 TIME A DAY, (1{DF} / 0.333DAY)
     Route: 065
     Dates: start: 20230927
  4. TIROPRAMIDE HYDROCHLORIDE [Suspect]
     Active Substance: TIROPRAMIDE HYDROCHLORIDE
     Indication: Product used for unknown indication
     Dosage: 1 DOSAGE FORM, 0.33 TIME A DAY (1{DF} / 0.333DAY)
     Route: 065
     Dates: start: 20230927

REACTIONS (1)
  - Seizure [Unknown]

NARRATIVE: CASE EVENT DATE: 20230927
